FAERS Safety Report 6360947-6 (Version None)
Quarter: 2009Q3

REPORT INFORMATION
  Report Type: 
  Country: None (occurrence: None)
  Receive Date: 20090918
  Receipt Date: 20090910
  Transmission Date: 20100115
  Serious: Yes (Hospitalization)
  Sender: FDA-Public Use
  Company Number: JP-BRISTOL-MYERS SQUIBB COMPANY-14739635

PATIENT
  Age: 56 Year
  Sex: Male

DRUGS (9)
  1. ABILIFY [Suspect]
     Indication: SCHIZOPHRENIA
     Dosage: 0.1 PERCENT,03-04JUL09:2DAYS:6MG,05-07JUL09:12MG:3DAYS,08JUL09-ONG:24MG,QD
     Route: 048
     Dates: start: 20090703
  2. HIRNAMIN [Concomitant]
     Dosage: TABS
     Dates: start: 19980501
  3. CONTOMIN [Concomitant]
     Dosage: TABS
  4. BIPERIDEN HYDROCHLORIDE TAB [Concomitant]
     Dosage: TABS
  5. MAGLAX [Concomitant]
     Dosage: TABS
  6. GASMOTIN [Concomitant]
     Dosage: TABS
     Dates: start: 20081014
  7. SENNOSIDE [Concomitant]
  8. LIPITOR [Concomitant]
     Dosage: FORM TABLET.
     Dates: start: 20070829
  9. ZYPREXA [Concomitant]
     Dosage: TABS
     Dates: start: 20000801

REACTIONS (1)
  - GASTRIC ULCER HAEMORRHAGE [None]
